FAERS Safety Report 7820189-1 (Version None)
Quarter: 2011Q4

REPORT INFORMATION
  Report Type: 
  Country: None (occurrence: None)
  Receive Date: 20111018
  Receipt Date: 20111011
  Transmission Date: 20120403
  Serious: Yes (Death, Other)
  Sender: FDA-Public Use
  Company Number: PL-PFIZER INC-2011238834

PATIENT
  Age: 61 Year
  Sex: Female

DRUGS (4)
  1. CYTARABINE [Suspect]
     Dosage: UNK
     Dates: start: 20090601, end: 20090801
  2. CISPLATIN [Suspect]
     Dosage: UNK
     Dates: start: 20090601, end: 20090801
  3. METHYLPREDNISOLONE [Suspect]
     Dosage: UNK
     Dates: start: 20090601, end: 20090801
  4. ETOPOSIDE [Suspect]
     Dosage: UNK
     Dates: start: 20090601, end: 20090801

REACTIONS (3)
  - LYMPHOMA [None]
  - DISEASE PROGRESSION [None]
  - BLOOD DISORDER [None]
